FAERS Safety Report 10533717 (Version 1)
Quarter: 2014Q4

REPORT INFORMATION
  Report Type: Spontaneous
  Country: US (occurrence: None)
  Receive Date: 20141021
  Receipt Date: 20141021
  Transmission Date: 20150529
  Serious: No
  Sender: FDA-Public Use
  Company Number: None

PATIENT
  Age: 62 Year
  Sex: Male
  Weight: 90.5 kg

DRUGS (12)
  1. REVLIMID [Suspect]
     Active Substance: LENALIDOMIDE
     Indication: PLASMA CELL MYELOMA
     Dosage: BEGINNING JANUARY 2012 15 MG DAILY ORALLY
     Route: 048
  2. FLOMAX [Concomitant]
     Active Substance: TAMSULOSIN HYDROCHLORIDE
  3. LIDOCAINE (LIDODERM) [Concomitant]
  4. FAMOTIDINE (PEPCID) [Concomitant]
  5. CELEBREX [Concomitant]
     Active Substance: CELECOXIB
  6. CHLORHEXIDINE GLUCONATE (PERIDEX) [Concomitant]
  7. LISINOPRIL-HYDROCHLOROTHIAZIDE (PRINZIDE/ZESTORIC) [Concomitant]
  8. FLUTICASONE (FLONASE) [Concomitant]
  9. WARFARIN (COUMADIN) [Concomitant]
  10. LEVITRA [Concomitant]
     Active Substance: VARDENAFIL HYDROCHLORIDE TRIHYDRATE
  11. PAMIDRONATE (AREDIA) [Concomitant]
  12. CYCLOBENZAPRINE (FLEXERIL) [Concomitant]

REACTIONS (5)
  - Paraesthesia [None]
  - Muscle spasms [None]
  - Back pain [None]
  - Neuropathy peripheral [None]
  - Hot flush [None]
